FAERS Safety Report 4359463-2 (Version None)
Quarter: 2004Q2

REPORT INFORMATION
  Report Type: 
  Country: None (occurrence: None)
  Receive Date: 20040514
  Receipt Date: 20040514
  Transmission Date: 20050107
  Serious: Yes (Hospitalization)
  Sender: FDA-Public Use
  Company Number: None

PATIENT
  Age: 65 Year
  Sex: Male

DRUGS (7)
  1. FOSINOPRIL SODIUM [Suspect]
     Indication: HYPERTENSION
     Dosage: 40 MG BID
     Dates: start: 20010801
  2. OMEPRAZOLE [Concomitant]
  3. FELODIPINE [Concomitant]
  4. FUROSEMIDE [Concomitant]
  5. ROZIGLITAZONE [Concomitant]
  6. NPH INSULIN [Concomitant]
  7. SUCRALFATE [Concomitant]

REACTIONS (1)
  - HYPERKALAEMIA [None]
